FAERS Safety Report 5650910-2 (Version None)
Quarter: 2008Q1

REPORT INFORMATION
  Report Type: 
  Country: None (occurrence: None)
  Receive Date: 20080131
  Receipt Date: 20080109
  Transmission Date: 20080703
  Serious: No
  Sender: FDA-Public Use
  Company Number: US200712002171

PATIENT
  Age: 85 Year
  Sex: Female
  Weight: 69.8 kg

DRUGS (7)
  1. BYETTA [Suspect]
     Indication: TYPE 2 DIABETES MELLITUS
     Dosage: 5 UG, SUBCUTANEOUS;10 UG, 2/D SUBCUTANEOUS;10 UG DAILY (1/D), SUBCUTANEOUS
     Route: 058
     Dates: start: 20050101, end: 20050101
  2. BYETTA [Suspect]
     Indication: TYPE 2 DIABETES MELLITUS
     Dosage: 5 UG, SUBCUTANEOUS;10 UG, 2/D SUBCUTANEOUS;10 UG DAILY (1/D), SUBCUTANEOUS
     Route: 058
     Dates: start: 20050101, end: 20070101
  3. BYETTA [Suspect]
     Indication: TYPE 2 DIABETES MELLITUS
     Dosage: 5 UG, SUBCUTANEOUS;10 UG, 2/D SUBCUTANEOUS;10 UG DAILY (1/D), SUBCUTANEOUS
     Route: 058
     Dates: start: 20070101
  4. EXENATIDE 5MCG PEN, DISPOSABLE DEVICE (EXENATIDE PEN (5MCG)) [Concomitant]
  5. METFORMIN HCL [Concomitant]
  6. AMARYL [Concomitant]
  7. PHENERGAN HCL [Concomitant]

REACTIONS (8)
  - AUTOMATIC BLADDER [None]
  - BALANCE DISORDER [None]
  - ERUCTATION [None]
  - HYPERTONIC BLADDER [None]
  - NAUSEA [None]
  - REFLUX OESOPHAGITIS [None]
  - VOMITING [None]
  - WEIGHT DECREASED [None]
